FAERS Safety Report 7491875-0 (Version None)
Quarter: 2011Q2

REPORT INFORMATION
  Report Type: 
  Country: None (occurrence: None)
  Receive Date: 20110519
  Receipt Date: 20110512
  Transmission Date: 20111010
  Serious: Yes (Life-Threatening, Hospitalization)
  Sender: FDA-Public Use
  Company Number: DE-ROCHE-777472

PATIENT
  Sex: Female
  Weight: 45 kg

DRUGS (2)
  1. RIBAVIRIN [Suspect]
     Route: 048
     Dates: start: 20100531, end: 20101227
  2. PEGINTERFERON ALFA-2A [Suspect]
     Route: 058
     Dates: start: 20100531, end: 20101227

REACTIONS (1)
  - RENAL FAILURE [None]
